FAERS Safety Report 15874302 (Version 1)
Quarter: 2019Q1

REPORT INFORMATION
  Report Type: Spontaneous
  Country: US (occurrence: US)
  Receive Date: 20190126
  Receipt Date: 20190126
  Transmission Date: 20190417
  Serious: No
  Sender: FDA-Public Use
  Company Number: US-ACORDA-ACO_151899_2018

PATIENT
  Sex: Female

DRUGS (2)
  1. TECFIDERA [Suspect]
     Active Substance: DIMETHYL FUMARATE
     Indication: MULTIPLE SCLEROSIS
     Dosage: UNK
     Route: 065
     Dates: start: 20170120, end: 20180321
  2. AMPYRA [Suspect]
     Active Substance: DALFAMPRIDINE
     Indication: GAIT DISTURBANCE
     Dosage: 10 MG, Q 12 HRS
     Route: 048

REACTIONS (9)
  - Adverse drug reaction [Unknown]
  - Therapy cessation [None]
  - Ill-defined disorder [Unknown]
  - Disorientation [Unknown]
  - Hypersensitivity [Unknown]
  - Dizziness [Unknown]
  - Fear [Unknown]
  - Malaise [Unknown]
  - Balance disorder [Unknown]
